FAERS Safety Report 6593376-0 (Version None)
Quarter: 2010Q1

REPORT INFORMATION
  Report Type: 
  Country: None (occurrence: None)
  Receive Date: 20100212
  Receipt Date: 20100128
  Transmission Date: 20100710
  Serious: Yes (Other)
  Sender: FDA-Public Use
  Company Number: GRP10000006

PATIENT
  Sex: Male

DRUGS (1)
  1. ACTONEL WITH CALCIUM (COPACKAGED) [Suspect]
     Indication: OSTEOPOROSIS
     Dosage: 1 DOSE FORM CYCLICALLY DAILY, ORAL
     Route: 048

REACTIONS (2)
  - CONDITION AGGRAVATED [None]
  - MACULAR DEGENERATION [None]
